FAERS Safety Report 5489964-5 (Version None)
Quarter: 2007Q4

REPORT INFORMATION
  Report Type: 
  Country: None (occurrence: None)
  Receive Date: 20071018
  Receipt Date: 20071009
  Transmission Date: 20080405
  Serious: Yes (Other)
  Sender: FDA-Public Use
  Company Number: GB-PFIZER INC-2007084908

PATIENT
  Age: 63 Year
  Sex: Female

DRUGS (1)
  1. DOXORUBICIN HYDROCHLORIDE [Suspect]
     Indication: BREAST CANCER
     Route: 042
     Dates: start: 20070808, end: 20070808

REACTIONS (5)
  - ANXIETY [None]
  - DYSPNOEA [None]
  - HOT FLUSH [None]
  - INJECTION SITE RASH [None]
  - RASH [None]
